FAERS Safety Report 7600431-2 (Version None)
Quarter: 2011Q3

REPORT INFORMATION
  Report Type: 
  Country: None (occurrence: None)
  Receive Date: 20110711
  Receipt Date: 20110706
  Transmission Date: 20111222
  Serious: Yes (Death, Hospitalization)
  Sender: FDA-Public Use
  Company Number: PHHY2011FR60276

PATIENT
  Sex: Female

DRUGS (3)
  1. SERETIDE [Concomitant]
     Dosage: 500 MG, BID
  2. LAMISIL [Suspect]
     Indication: TRICHOPHYTOSIS
     Dosage: 250 MG, QD
     Dates: start: 20110502, end: 20110515
  3. ARICEPT [Suspect]
     Indication: DEMENTIA
     Dosage: 5 MG, QD
     Route: 048
     Dates: start: 20110505, end: 20110515

REACTIONS (6)
  - ACUTE GENERALISED EXANTHEMATOUS PUSTULOSIS [None]
  - CARDIO-RESPIRATORY ARREST [None]
  - STAPHYLOCOCCAL INFECTION [None]
  - LEUKOCYTOSIS [None]
  - VOMITING [None]
  - PYREXIA [None]
